FAERS Safety Report 4781906-0 (Version None)
Quarter: 2005Q3

REPORT INFORMATION
  Report Type: 
  Country: None (occurrence: None)
  Receive Date: 20050927
  Receipt Date: 20050916
  Transmission Date: 20060218
  Serious: Yes (Death, Hospitalization, Other)
  Sender: FDA-Public Use
  Company Number: 2005129667

PATIENT
  Age: 69 Year
  Sex: Female
  Weight: 52.1637 kg

DRUGS (1)
  1. LIPITOR [Suspect]
     Indication: BLOOD CHOLESTEROL INCREASED
     Dosage: 80 MG (80 MG, 1 IN 1 D), ORAL
     Route: 048
     Dates: start: 20030101, end: 20030101

REACTIONS (11)
  - BLOOD TEST ABNORMAL [None]
  - CEREBRAL DISORDER [None]
  - CEREBROVASCULAR ACCIDENT [None]
  - ENZYME ABNORMALITY [None]
  - HAEMATOMA [None]
  - IATROGENIC INJURY [None]
  - INFLUENZA [None]
  - MALAISE [None]
  - NASOPHARYNGITIS [None]
  - PAIN [None]
  - RHABDOMYOLYSIS [None]
